FAERS Safety Report 18820202 (Version 1)
Quarter: 2021Q1

REPORT INFORMATION
  Report Type: Spontaneous
  Country: PL (occurrence: PL)
  Receive Date: 20210202
  Receipt Date: 20210202
  Transmission Date: 20210419
  Serious: Yes (Other)
  Sender: FDA-Public Use
  Company Number: NVSC2020PL218156

PATIENT
  Age: 10 Year
  Sex: Male
  Weight: 46.6 kg

DRUGS (10)
  1. METHYLPREDNISOLONE. [Suspect]
     Active Substance: METHYLPREDNISOLONE
     Dosage: 12 MG, QD
     Route: 048
     Dates: start: 20171205, end: 20190630
  2. METHOTREXATE. [Suspect]
     Active Substance: METHOTREXATE
     Indication: JUVENILE IDIOPATHIC ARTHRITIS
     Dosage: 12.5 MG, QW
     Route: 048
     Dates: start: 20171205, end: 20180306
  3. HYDROXYCHLOROQUINE [Suspect]
     Active Substance: HYDROXYCHLOROQUINE
     Indication: JUVENILE IDIOPATHIC ARTHRITIS
     Dosage: 200 MG, QD
     Route: 048
     Dates: start: 20180614
  4. METHOTREXATE. [Suspect]
     Active Substance: METHOTREXATE
     Dosage: 15 MG, QW
     Route: 048
     Dates: start: 20180307
  5. BUDESONIDE. [Concomitant]
     Active Substance: BUDESONIDE
     Indication: ASTHMA
     Dosage: DOSE: 1 PUFFS
     Route: 048
     Dates: start: 20111217
  6. METHYLPREDNISOLONE. [Suspect]
     Active Substance: METHYLPREDNISOLONE
     Indication: JUVENILE IDIOPATHIC ARTHRITIS
     Dosage: 12 MG, QD
     Route: 048
     Dates: start: 20171005, end: 20180417
  7. OMEPRAZOLUM [Concomitant]
     Indication: PRODUCT USED FOR UNKNOWN INDICATION
     Dosage: 20 MG, QD
     Route: 048
     Dates: start: 20171205, end: 20180417
  8. KALII CHLORIDUM [Concomitant]
     Indication: PRODUCT USED FOR UNKNOWN INDICATION
     Dosage: DOSE 1 OTHER
     Route: 048
     Dates: start: 20171205, end: 20180417
  9. VIGANTOLETTEN [Concomitant]
     Active Substance: CHOLECALCIFEROL
     Indication: VITAMIN D DEFICIENCY
     Dosage: 1000 IU, QD
     Route: 048
     Dates: start: 20171128
  10. XALOPTIC [Concomitant]
     Indication: GLAUCOMA
     Dosage: 1 DRP, QD
     Route: 065
     Dates: start: 20180228

REACTIONS (4)
  - Transaminases increased [Recovered/Resolved]
  - Cushing^s syndrome [Recovering/Resolving]
  - Vomiting [Unknown]
  - Pharyngitis [Unknown]

NARRATIVE: CASE EVENT DATE: 20180306
